FAERS Safety Report 13861987 (Version 1)
Quarter: 2017Q3

REPORT INFORMATION
  Report Type: Report from Study
  Country: None (occurrence: RO)
  Receive Date: 20170811
  Receipt Date: 20170811
  Transmission Date: 20171127
  Serious: Yes (Death)
  Sender: FDA-Public Use
  Company Number: RO-ABBVIE-17K-135-2069250-00

PATIENT
  Age: 60 Year
  Sex: Male

DRUGS (2)
  1. DUODOPA [Suspect]
     Active Substance: CARBIDOPA\LEVODOPA
     Indication: PARKINSON^S DISEASE
     Dosage: MD-7??CR7.9??ED-4.5
     Route: 050
     Dates: start: 20160408, end: 20170806
  2. LEPONEX [Concomitant]
     Active Substance: CLOZAPINE
     Indication: PERSONALITY DISORDER
     Route: 048
     Dates: start: 20161129, end: 20170806

REACTIONS (1)
  - Cardio-respiratory arrest [Fatal]

NARRATIVE: CASE EVENT DATE: 20170806
